FAERS Safety Report 9116584 (Version 1)
Quarter: 2013Q1

REPORT INFORMATION
  Report Type: Spontaneous
  Country: HR (occurrence: HR)
  Receive Date: 20130225
  Receipt Date: 20130225
  Transmission Date: 20140127
  Serious: Yes (Other)
  Sender: FDA-Public Use
  Company Number: PHHY2013HR016147

PATIENT
  Age: 58 Year
  Sex: Female

DRUGS (2)
  1. KETONAL [Suspect]
     Indication: BACK PAIN
     Dosage: 100 MG, BID
     Route: 048
     Dates: start: 20130125, end: 20130125
  2. PANATUS [Concomitant]
     Indication: COUGH
     Dosage: 50 MG, BID
     Route: 048
     Dates: start: 20130121

REACTIONS (4)
  - Angioedema [Recovered/Resolved]
  - Feeling hot [Recovered/Resolved]
  - Headache [Recovered/Resolved]
  - Erythema [Recovered/Resolved]
